FAERS Safety Report 17066730 (Version 1)
Quarter: 2019Q4

REPORT INFORMATION
  Report Type: Report from Study
  Country: US (occurrence: US)
  Receive Date: 20191122
  Receipt Date: 20191122
  Transmission Date: 20200122
  Serious: Yes (Other)
  Sender: FDA-Public Use
  Company Number: US-AMGEN-USASL2019193488

PATIENT
  Age: 68 Year
  Sex: Female

DRUGS (1)
  1. IMLYGIC [Suspect]
     Active Substance: TALIMOGENE LAHERPAREPVEC
     Indication: MALIGNANT MELANOMA
     Dosage: UNK
     Route: 065
     Dates: start: 201901, end: 201907

REACTIONS (3)
  - Ear pain [Recovering/Resolving]
  - Deafness [Not Recovered/Not Resolved]
  - Oral pustule [Unknown]

NARRATIVE: CASE EVENT DATE: 2019
